FAERS Safety Report 10681218 (Version 3)
Quarter: 2015Q2

REPORT INFORMATION
  Report Type: Report from Study
  Country: US (occurrence: US)
  Receive Date: 20141230
  Receipt Date: 20150429
  Transmission Date: 20150821
  Serious: Yes (Hospitalization, Other)
  Sender: FDA-Public Use
  Company Number: PHEH2014US025931

PATIENT
  Age: 53 Year
  Sex: Female

DRUGS (5)
  1. CLOZARIL [Suspect]
     Active Substance: CLOZAPINE
     Indication: SCHIZOAFFECTIVE DISORDER
     Dosage: 125 MG, UNK
     Route: 048
  2. CLOZARIL [Interacting]
     Active Substance: CLOZAPINE
     Dosage: 200 MG, UNK
     Route: 048
  3. CLOZARIL [Interacting]
     Active Substance: CLOZAPINE
     Dosage: 100 MG, UNK
     Route: 048
  4. CLOZARIL [Interacting]
     Active Substance: CLOZAPINE
     Dosage: 175 MG, QD
     Route: 048
  5. FLUCONAZOLE. [Interacting]
     Active Substance: FLUCONAZOLE
     Indication: FUNGAL INFECTION
     Dosage: 200 MG, UNK
     Route: 048

REACTIONS (6)
  - Confusional state [Recovered/Resolved]
  - Schizoaffective disorder [Recovered/Resolved]
  - Drug interaction [Recovered/Resolved]
  - Myoclonus [Recovered/Resolved]
  - Tic [Unknown]
  - Antipsychotic drug level increased [Recovered/Resolved]

NARRATIVE: CASE EVENT DATE: 20141215
